FAERS Safety Report 4761066-2 (Version None)
Quarter: 2005Q3

REPORT INFORMATION
  Report Type: 
  Country: None (occurrence: None)
  Receive Date: 20050901
  Receipt Date: 20050819
  Transmission Date: 20060218
  Serious: Yes (Other)
  Sender: FDA-Public Use
  Company Number: 12141

PATIENT
  Age: 6 Year
  Sex: Female

DRUGS (1)
  1. METHOTREXATE [Suspect]
     Dosage: 12 MG IT
     Route: 037
     Dates: start: 20050707, end: 20050707

REACTIONS (2)
  - DYSAESTHESIA [None]
  - MONOPLEGIA [None]
